FAERS Safety Report 14078265 (Version 4)
Quarter: 2017Q4

REPORT INFORMATION
  Report Type: Spontaneous
  Country: US (occurrence: US)
  Receive Date: 20171012
  Receipt Date: 20171116
  Transmission Date: 20180321
  Serious: No
  Sender: FDA-Public Use
  Company Number: US-PFIZER INC-2017437455

PATIENT
  Age: 50 Year
  Sex: Female
  Weight: 97.7 kg

DRUGS (3)
  1. PREDNISONE. [Concomitant]
     Active Substance: PREDNISONE
     Dosage: UNK
  2. LEFLUNOMIDE. [Concomitant]
     Active Substance: LEFLUNOMIDE
     Dosage: UNK
  3. XELJANZ XR [Suspect]
     Active Substance: TOFACITINIB CITRATE
     Indication: RHEUMATOID ARTHRITIS
     Dosage: 11 MG, 1X/DAY IN THE MORNING OR AT NIGHT
     Route: 048
     Dates: start: 201709

REACTIONS (7)
  - Peripheral swelling [Recovered/Resolved]
  - Joint swelling [Unknown]
  - Feeling abnormal [Unknown]
  - Gastroenteritis viral [Unknown]
  - Drug ineffective [Not Recovered/Not Resolved]
  - Nausea [Recovered/Resolved]
  - Swelling face [Recovered/Resolved]

NARRATIVE: CASE EVENT DATE: 2017
